FAERS Safety Report 19341113 (Version 2)
Quarter: 2021Q2

REPORT INFORMATION
  Report Type: Report from Study
  Country: None (occurrence: US)
  Receive Date: 20210530
  Receipt Date: 20210604
  Transmission Date: 20210717
  Serious: Yes (Hospitalization, Other)
  Sender: FDA-Public Use
  Company Number: US-ABBVIE-21K-163-3837561-00

PATIENT
  Age: 16 Year
  Sex: Male
  Weight: 70.82 kg

DRUGS (2)
  1. HUMIRA [Suspect]
     Active Substance: ADALIMUMAB
     Indication: CROHN^S DISEASE
     Dosage: CITRATE FREE
     Route: 058
  2. HUMIRA [Suspect]
     Active Substance: ADALIMUMAB
     Indication: CROHN^S DISEASE
     Route: 058
     Dates: start: 202011

REACTIONS (8)
  - Fatigue [Not Recovered/Not Resolved]
  - Mineral supplementation [Unknown]
  - Surgery [Not Recovered/Not Resolved]
  - Intestinal obstruction [Recovering/Resolving]
  - Asthenia [Unknown]
  - Suture related complication [Not Recovered/Not Resolved]
  - Intestinal obstruction [Recovered/Resolved]
  - Insomnia [Unknown]

NARRATIVE: CASE EVENT DATE: 202010
